FAERS Safety Report 11037965 (Version 2)
Quarter: 2015Q2

REPORT INFORMATION
  Report Type: Spontaneous
  Country: US (occurrence: US)
  Receive Date: 20150416
  Receipt Date: 20150501
  Transmission Date: 20150821
  Serious: Yes (Death, Hospitalization, Other)
  Sender: FDA-Public Use
  Company Number: US-MERCK-1504USA015460

PATIENT
  Sex: Female
  Weight: 90.7 kg

DRUGS (1)
  1. JANUVIA [Suspect]
     Active Substance: SITAGLIPTIN PHOSPHATE
     Indication: TYPE 2 DIABETES MELLITUS
     Dosage: 100 MG, QD
     Route: 048
     Dates: start: 20080308, end: 20130719

REACTIONS (38)
  - Metastases to liver [Unknown]
  - Metastases to lymph nodes [Unknown]
  - Endometrial adenocarcinoma [Unknown]
  - Bladder disorder [Unknown]
  - Pancreatitis chronic [Not Recovered/Not Resolved]
  - Hypertension [Unknown]
  - Lymphoedema [Not Recovered/Not Resolved]
  - Lower gastrointestinal haemorrhage [Unknown]
  - Venous stent insertion [Unknown]
  - Thrombosis in device [Unknown]
  - Oedema peripheral [Unknown]
  - Hypotension [Unknown]
  - Back pain [Unknown]
  - Hiatus hernia [Unknown]
  - Arteriosclerosis coronary artery [Unknown]
  - Umbilical hernia [Unknown]
  - Deep vein thrombosis [Unknown]
  - Procedural haemorrhage [Unknown]
  - Wrist fracture [Unknown]
  - Radical hysterectomy [Unknown]
  - Coagulopathy [Unknown]
  - Anaemia [Unknown]
  - Atelectasis [Unknown]
  - Hepatic steatosis [Unknown]
  - Pancreatic duct dilatation [Unknown]
  - Loss of consciousness [Unknown]
  - Pancreatic carcinoma metastatic [Fatal]
  - Pancreaticoduodenectomy [Unknown]
  - Cholecystitis chronic [Not Recovered/Not Resolved]
  - Renal atrophy [Unknown]
  - Spondylolisthesis [Unknown]
  - Oedema [Unknown]
  - Vasodilatation [Unknown]
  - Spondylolysis [Unknown]
  - Vena cava filter insertion [Unknown]
  - Hypovolaemia [Unknown]
  - Confusional state [Recovered/Resolved]
  - Abdominal pain [Unknown]

NARRATIVE: CASE EVENT DATE: 2009
